FAERS Safety Report 14155120 (Version 1)
Quarter: 2017Q4

REPORT INFORMATION
  Report Type: Spontaneous
  Country: US (occurrence: US)
  Receive Date: 20171103
  Receipt Date: 20171103
  Transmission Date: 20180321
  Serious: Yes (Hospitalization)
  Sender: FDA-Public Use
  Company Number: US-CONCORDIA PHARMACEUTICALS INC.-MAPI_00010912

PATIENT
  Sex: Male

DRUGS (10)
  1. FUROSEMIDE. [Suspect]
     Active Substance: FUROSEMIDE
     Indication: DIURETIC THERAPY
     Dosage: ONCE DAILY
  2. PANTOPRAZOLE [Suspect]
     Active Substance: PANTOPRAZOLE
     Indication: ULCER
     Dosage: ONE TWICE DAILY AM/PM
     Route: 065
  3. DYRENIUM [Suspect]
     Active Substance: TRIAMTERENE
     Indication: BLOOD PRESSURE MEASUREMENT
     Dosage: ONCE DAILY AM
     Route: 065
  4. RAPAMUNE [Suspect]
     Active Substance: SIROLIMUS
     Indication: PRODUCT USED FOR UNKNOWN INDICATION
     Route: 065
  5. POTASSIUM CHLORIDE. [Suspect]
     Active Substance: POTASSIUM CHLORIDE
     Indication: DIURETIC THERAPY
     Route: 065
  6. FOLIC ACID. [Suspect]
     Active Substance: FOLIC ACID
     Indication: VITAMIN SUPPLEMENTATION
     Dosage: ONE TWICE DAILY AM/PM
     Route: 065
  7. POTASSIUM CHLORIDE. [Suspect]
     Active Substance: POTASSIUM CHLORIDE
     Indication: OEDEMA
  8. PRAVASTATIN. [Suspect]
     Active Substance: PRAVASTATIN
     Indication: BLOOD CHOLESTEROL
     Dosage: TWO ONCE DAILY PM
     Route: 065
  9. LAMIVUDINE. [Suspect]
     Active Substance: LAMIVUDINE
     Indication: HEPATITIS
     Dosage: HALF ONCE DAILY
     Route: 065
  10. FUROSEMIDE. [Suspect]
     Active Substance: FUROSEMIDE
     Indication: OEDEMA

REACTIONS (1)
  - Clavicle fracture [Recovered/Resolved]
